FAERS Safety Report 4478252-1 (Version None)
Quarter: 2004Q4

REPORT INFORMATION
  Report Type: 
  Country: None (occurrence: None)
  Receive Date: 20041019
  Receipt Date: 20041008
  Transmission Date: 20050328
  Serious: Yes (Other)
  Sender: FDA-Public Use
  Company Number: PHBS2004NO13614

PATIENT
  Age: 10 Year
  Sex: Female

DRUGS (1)
  1. CARBAMAZEPINE [Suspect]
     Indication: EPILEPSY
     Route: 065

REACTIONS (11)
  - ANTIACETYLCHOLINE RECEPTOR ANTIBODY POSITIVE [None]
  - DYSARTHRIA [None]
  - DYSPHAGIA [None]
  - ELECTROMYOGRAM ABNORMAL [None]
  - EYELID PTOSIS [None]
  - FATIGUE [None]
  - LYMPHOID TISSUE HYPERPLASIA [None]
  - MYASTHENIA GRAVIS [None]
  - NUCLEAR MAGNETIC RESONANCE IMAGING THORACIC ABNORMAL [None]
  - TENSILON TEST ABNORMAL [None]
  - THYMECTOMY [None]
